FAERS Safety Report 14618679 (Version 3)
Quarter: 2018Q2

REPORT INFORMATION
  Report Type: Spontaneous
  Country: CA (occurrence: CA)
  Receive Date: 20180309
  Receipt Date: 20180417
  Transmission Date: 20180711
  Serious: Yes (Other)
  Sender: FDA-Public Use
  Company Number: CA-CELLTRION INC.-2017CA016688

PATIENT

DRUGS (5)
  1. SALOFALK                           /00000301/ [Concomitant]
     Active Substance: MESALAMINE
     Dosage: UNK
     Dates: start: 201508
  2. INFLECTRA [Suspect]
     Active Substance: INFLIXIMAB-DYYB
     Indication: ANKYLOSING SPONDYLITIS
     Dosage: 238.5 MG, (3.2 MG/KG) CYCLIC
     Route: 065
     Dates: start: 20171205
  3. INFLECTRA [Suspect]
     Active Substance: INFLIXIMAB-DYYB
     Dosage: 225 MG, CYCLIC (EVERY 0, 2, 6 WEEKS, THEN EVERY 8 WEEKS)
     Route: 042
     Dates: start: 20171123
  4. INFLECTRA [Suspect]
     Active Substance: INFLIXIMAB-DYYB
     Dosage: 3 MG/KG, CYCLIC  (EVERY 2, 6 AND EVERY 8 WEEKS)
     Route: 042
     Dates: start: 20180111, end: 20180111
  5. INFLECTRA [Suspect]
     Active Substance: INFLIXIMAB-DYYB
     Indication: COLITIS ULCERATIVE
     Dosage: 3 MG/KG, CYCLIC  (EVERY 2, 6 AND EVERY 8 WEEKS)
     Route: 065
     Dates: start: 20171205

REACTIONS (12)
  - Drug effect incomplete [Unknown]
  - Incorrect dose administered [Unknown]
  - Ear swelling [Recovered/Resolved]
  - Pneumonia [Unknown]
  - Ear swelling [Unknown]
  - Drug prescribing error [Unknown]
  - Infection [Unknown]
  - Erythema [Recovered/Resolved]
  - Product use issue [Unknown]
  - Oropharyngeal pain [Unknown]
  - Pruritus [Not Recovered/Not Resolved]
  - Swelling face [Unknown]

NARRATIVE: CASE EVENT DATE: 20171209
